FAERS Safety Report 21046270 (Version 1)
Quarter: 2022Q3

REPORT INFORMATION
  Report Type: Spontaneous
  Country: US (occurrence: US)
  Receive Date: 20220706
  Receipt Date: 20220706
  Transmission Date: 20221027
  Serious: No
  Sender: FDA-Public Use
  Company Number: US-BRISTOL-MYERS SQUIBB COMPANY-2022-062473

PATIENT
  Age: 62 Year
  Sex: Male

DRUGS (2)
  1. OPDIVO [Suspect]
     Active Substance: NIVOLUMAB
     Indication: Gastrointestinal cancer metastatic
     Route: 065
  2. OPDIVO [Suspect]
     Active Substance: NIVOLUMAB
     Route: 065

REACTIONS (4)
  - Vestibulitis [Not Recovered/Not Resolved]
  - Nausea [Not Recovered/Not Resolved]
  - Balance disorder [Not Recovered/Not Resolved]
  - Gait inability [Not Recovered/Not Resolved]
